FAERS Safety Report 10084026 (Version 1)
Quarter: 2014Q2

REPORT INFORMATION
  Report Type: Spontaneous
  Country: FR (occurrence: FR)
  Receive Date: 20140417
  Receipt Date: 20140417
  Transmission Date: 20141212
  Serious: Yes (Life-Threatening, Hospitalization)
  Sender: FDA-Public Use
  Company Number: FR-TEVA-475271ISR

PATIENT
  Age: 80 Year
  Sex: Female

DRUGS (2)
  1. PACLITAXEL TEVA [Suspect]
     Dosage: FIRST COURSE AT 282 MG
     Route: 042
     Dates: start: 20080327
  2. PACLITAXEL TEVA [Suspect]
     Dosage: SECOND COURSE AT 282 MG
     Route: 042
     Dates: start: 20080404

REACTIONS (5)
  - Circulatory collapse [Recovered/Resolved]
  - Loss of consciousness [Recovered/Resolved]
  - Urinary incontinence [Recovered/Resolved]
  - Myoclonus [Recovered/Resolved]
  - Flushing [Recovered/Resolved]
